FAERS Safety Report 12430549 (Version 1)
Quarter: 2016Q2

REPORT INFORMATION
  Report Type: Spontaneous
  Country: US (occurrence: US)
  Receive Date: 20160602
  Receipt Date: 20160602
  Transmission Date: 20160815
  Serious: No
  Sender: FDA-Public Use
  Company Number: US-ABBVIE-16P-163-1559248-00

PATIENT
  Age: 79 Year
  Sex: Female

DRUGS (1)
  1. DRONABINOL. [Suspect]
     Active Substance: DRONABINOL
     Indication: WEIGHT DECREASED
     Route: 048
     Dates: start: 201512

REACTIONS (3)
  - Incorrect product storage [Recovered/Resolved]
  - Dizziness [Not Recovered/Not Resolved]
  - Poor quality drug administered [Not Recovered/Not Resolved]

NARRATIVE: CASE EVENT DATE: 201602
